FAERS Safety Report 16352899 (Version 4)
Quarter: 2019Q3

REPORT INFORMATION
  Report Type: Spontaneous
  Country: US (occurrence: US)
  Receive Date: 20190524
  Receipt Date: 20190807
  Transmission Date: 20191004
  Serious: No
  Sender: FDA-Public Use
  Company Number: US-PFIZER INC-2019199774

PATIENT
  Age: 74 Year
  Sex: Female
  Weight: 100 kg

DRUGS (4)
  1. PREMARIN [Suspect]
     Active Substance: ESTROGENS, CONJUGATED
     Indication: ATROPHIC VULVOVAGINITIS
     Dosage: 0.5 MG, UNK
  2. PREMARIN [Suspect]
     Active Substance: ESTROGENS, CONJUGATED
     Dosage: JUST A LITTLE DAB OR 1 G
     Dates: start: 20170726
  3. PREMARIN [Suspect]
     Active Substance: ESTROGENS, CONJUGATED
     Dosage: UNK, 3-4 TIMES PER WEEK
  4. PREMARIN [Suspect]
     Active Substance: ESTROGENS, CONJUGATED
     Dosage: 0.625 MG/G, UNK(1 PEASIZED AMOUNT TO VULVA 2-3 TIMES A WEEK)

REACTIONS (8)
  - Gait disturbance [Unknown]
  - Product dose omission [Unknown]
  - Product dispensing error [Unknown]
  - Off label use [Unknown]
  - Product selection error [Unknown]
  - Expired product administered [Unknown]
  - Intentional product misuse [Unknown]
  - Weight increased [Unknown]
